FAERS Safety Report 25833116 (Version 4)
Quarter: 2025Q4

REPORT INFORMATION
  Report Type: Spontaneous
  Country: GT (occurrence: GT)
  Receive Date: 20250922
  Receipt Date: 20251031
  Transmission Date: 20260118
  Serious: No
  Sender: PFIZER
  Company Number: GT-PFIZER INC-PV202500112806

PATIENT
  Age: 11 Year
  Sex: Male

DRUGS (2)
  1. GENOTROPIN [Suspect]
     Active Substance: SOMATROPIN
     Dosage: 1.0 MG, DAILY (EVERY NIGHT)
  2. GENOTROPIN [Suspect]
     Active Substance: SOMATROPIN
     Dosage: 1.2 MG, DAILY

REACTIONS (4)
  - Incorrect dose administered by device [Unknown]
  - Device breakage [Unknown]
  - Device delivery system issue [Unknown]
  - Device use error [Unknown]
